FAERS Safety Report 24786523 (Version 1)
Quarter: 2024Q4

REPORT INFORMATION
  Report Type: Report from Study
  Country: US (occurrence: US)
  Receive Date: 20241230
  Receipt Date: 20241230
  Transmission Date: 20250115
  Serious: Yes (Hospitalization, Other)
  Sender: JAZZ
  Company Number: US-JAZZ PHARMACEUTICALS-2024-US-024879

PATIENT
  Age: 13 Year
  Sex: Female
  Weight: 46.9 kg

DRUGS (2)
  1. EPIDIOLEX [Suspect]
     Active Substance: CANNABIDIOL
     Indication: Seizure
     Dosage: 5 MILLILITER, BID
     Route: 048
     Dates: start: 20240913
  2. LAMICTAL [Suspect]
     Active Substance: LAMOTRIGINE
     Indication: Product used for unknown indication

REACTIONS (11)
  - Oxygen saturation decreased [Recovered/Resolved]
  - Generalised tonic-clonic seizure [Unknown]
  - Status epilepticus [Recovered/Resolved]
  - White blood cell count increased [Unknown]
  - Aggression [Recovered/Resolved]
  - Confusional state [Unknown]
  - Dysarthria [Unknown]
  - Blepharospasm [Recovered/Resolved]
  - Mydriasis [Unknown]
  - Inappropriate schedule of product administration [Unknown]
  - Product dose omission issue [Unknown]

NARRATIVE: CASE EVENT DATE: 20241114
